FAERS Safety Report 12602933 (Version 1)
Quarter: 2016Q3

REPORT INFORMATION
  Report Type: Report from Study
  Country: US (occurrence: US)
  Receive Date: 20160728
  Receipt Date: 20160728
  Transmission Date: 20161109
  Serious: Yes (Other)
  Sender: FDA-Public Use
  Company Number: US-BAYER-2016-004664

PATIENT
  Age: 80 Year
  Sex: Female
  Weight: 90.7 kg

DRUGS (6)
  1. ADEMPAS [Suspect]
     Active Substance: RIOCIGUAT
     Indication: PULMONARY HYPERTENSION
     Dosage: 0.5 MG, TID
     Route: 048
     Dates: start: 20151217
  2. REGLAN [Suspect]
     Active Substance: METOCLOPRAMIDE HYDROCHLORIDE
     Dosage: UNK
  3. ADEMPAS [Suspect]
     Active Substance: RIOCIGUAT
     Indication: PULMONARY HYPERTENSION
     Dosage: 2.5 MG, TID
     Route: 048
  4. APIXABAN [Concomitant]
     Active Substance: APIXABAN
     Dosage: UNK
  5. ADEMPAS [Suspect]
     Active Substance: RIOCIGUAT
     Indication: PULMONARY HYPERTENSION
     Dosage: 2.5 MG, TID
     Route: 048
  6. LETAIRIS [Concomitant]
     Active Substance: AMBRISENTAN
     Dosage: UNK

REACTIONS (13)
  - Blood glucose decreased [Unknown]
  - Dyspnoea [Unknown]
  - Cough [Unknown]
  - Fall [Unknown]
  - Contusion [Unknown]
  - Abdominal distension [Unknown]
  - Fluid retention [Unknown]
  - Unresponsive to stimuli [Unknown]
  - Coma [Unknown]
  - Cough [None]
  - Flatulence [Unknown]
  - Hypotension [Unknown]
  - Somnolence [Unknown]
